FAERS Safety Report 10948851 (Version 2)
Quarter: 2017Q1

REPORT INFORMATION
  Report Type: Spontaneous
  Country: US (occurrence: US)
  Receive Date: 20150324
  Receipt Date: 20170307
  Transmission Date: 20170428
  Serious: No
  Sender: FDA-Public Use
  Company Number: US-PFIZER INC-2015096364

PATIENT
  Sex: Female

DRUGS (5)
  1. CODEINE [Suspect]
     Active Substance: CODEINE
     Dosage: UNK
  2. KEFLEX [Suspect]
     Active Substance: CEPHALEXIN
     Dosage: UNK
  3. PAXIL [Suspect]
     Active Substance: PAROXETINE HYDROCHLORIDE
     Dosage: UNK
  4. FELDENE [Suspect]
     Active Substance: PIROXICAM
     Dosage: UNK
  5. TALWIN [Suspect]
     Active Substance: PENTAZOCINE LACTATE
     Dosage: UNK

REACTIONS (1)
  - Drug hypersensitivity [Unknown]
